FAERS Safety Report 18216640 (Version 1)
Quarter: 2020Q3

REPORT INFORMATION
  Report Type: Spontaneous
  Country: US (occurrence: US)
  Receive Date: 20200831
  Receipt Date: 20200831
  Transmission Date: 20201103
  Serious: Yes (Life-Threatening, Hospitalization)
  Sender: FDA-Public Use
  Company Number: None

PATIENT
  Age: 79 Year
  Sex: Male

DRUGS (1)
  1. CISATRACURIUM (CISATRACURIUM BESYLATE 2MG/ML INJ, SOLN) [Suspect]
     Active Substance: CISATRACURIUM BESYLATE
     Route: 042
     Dates: start: 20200815, end: 20200815

REACTIONS (2)
  - COVID-19 [None]
  - Hyperthermia malignant [None]

NARRATIVE: CASE EVENT DATE: 20200816
